FAERS Safety Report 19883013 (Version 1)
Quarter: 2021Q3

REPORT INFORMATION
  Report Type: Spontaneous
  Country: DE (occurrence: DE)
  Receive Date: 20210926
  Receipt Date: 20210926
  Transmission Date: 20211014
  Serious: Yes (Congenital Anomaly)
  Sender: FDA-Public Use
  Company Number: DE-DEXPHARM-20211558

PATIENT
  Age: 1 Day
  Sex: Female
  Weight: 2.46 kg

DRUGS (2)
  1. VENLAFAXINE [Suspect]
     Active Substance: VENLAFAXINE HYDROCHLORIDE
     Indication: ANXIETY DISORDER
     Dosage: 150 [MG/D ]
     Route: 064
     Dates: start: 20200616, end: 20210220
  2. FOLIO?FORTE [Concomitant]

REACTIONS (1)
  - Atrial septal defect [Unknown]
